FAERS Safety Report 5036567-2 (Version None)
Quarter: 2006Q2

REPORT INFORMATION
  Report Type: 
  Country: None (occurrence: None)
  Receive Date: 20060614
  Receipt Date: 20051117
  Transmission Date: 20061013
  Serious: Yes (Hospitalization, Other)
  Sender: FDA-Public Use
  Company Number: 430025M05USA

PATIENT
  Age: 61 Year
  Sex: Male

DRUGS (2)
  1. NOVANTRONE [Suspect]
     Indication: MULTIPLE SCLEROSIS
     Dosage: 1 IN 3 MONTHS, INTRAVENOUS
     Route: 042
     Dates: start: 20030101
  2. DURAGESIC PATCH (FENTANYL/00174601/) [Concomitant]

REACTIONS (8)
  - CELLULITIS [None]
  - ERYTHEMA [None]
  - EXTRAVASATION [None]
  - INJECTION SITE PAIN [None]
  - MOTOR DYSFUNCTION [None]
  - SKIN EXFOLIATION [None]
  - SKIN WARM [None]
  - SWELLING [None]
